FAERS Safety Report 7787814-5 (Version None)
Quarter: 2011Q3

REPORT INFORMATION
  Report Type: 
  Country: None (occurrence: None)
  Receive Date: 20110930
  Receipt Date: 20110920
  Transmission Date: 20111222
  Serious: Yes (Hospitalization)
  Sender: FDA-Public Use
  Company Number: PT-BIOGENIDEC-2011BI035068

PATIENT
  Age: 63 Year
  Sex: Male

DRUGS (5)
  1. VITAMIN D [Concomitant]
     Indication: CARDIOVASCULAR EVENT PROPHYLAXIS
  2. TYSABRI [Suspect]
     Indication: MULTIPLE SCLEROSIS
     Route: 042
     Dates: start: 20080813
  3. FOLIC ACID [Concomitant]
     Indication: CARDIOVASCULAR EVENT PROPHYLAXIS
  4. VITAMIN B-12 [Concomitant]
     Indication: CARDIOVASCULAR EVENT PROPHYLAXIS
  5. PERINDOPRIL ERBUMINE [Concomitant]
     Indication: HYPERTENSION

REACTIONS (1)
  - ACUTE MYOCARDIAL INFARCTION [None]
